FAERS Safety Report 25952199 (Version 2)
Quarter: 2025Q4

REPORT INFORMATION
  Report Type: Spontaneous
  Country: JP (occurrence: JP)
  Receive Date: 20251023
  Receipt Date: 20251029
  Transmission Date: 20260118
  Serious: Yes (Other)
  Sender: ALEXION PHARMACEUTICALS
  Company Number: JP-ASTRAZENECA-202510JPN012007JP

PATIENT
  Age: 75 Year
  Sex: Female

DRUGS (1)
  1. DAPAGLIFLOZIN [Suspect]
     Active Substance: DAPAGLIFLOZIN
     Indication: Prophylaxis
     Dosage: 10 MILLIGRAM
     Route: 065

REACTIONS (6)
  - Autonomic neuropathy [Unknown]
  - Decreased appetite [Unknown]
  - Hypertension [Unknown]
  - Treatment noncompliance [Unknown]
  - Urine output decreased [Unknown]
  - Pollakiuria [Unknown]
